FAERS Safety Report 9788444 (Version 2)
Quarter: 2013Q4

REPORT INFORMATION
  Report Type: Spontaneous
  Country: FR (occurrence: FR)
  Receive Date: 20131230
  Receipt Date: 20131230
  Transmission Date: 20140711
  Serious: Yes (Other)
  Sender: FDA-Public Use
  Company Number: FR-PFIZER INC-2013369275

PATIENT
  Age: 59 Year
  Sex: Male

DRUGS (5)
  1. RAMIPRIL [Suspect]
     Dosage: 2.5 MG, DAILY
     Route: 048
     Dates: start: 201303
  2. ALLOPURINOL [Suspect]
     Dosage: 300 MG, DAILY
     Route: 048
     Dates: start: 201303
  3. ATENOLOL [Concomitant]
     Dosage: UNK
  4. ATORVASTATIN [Concomitant]
     Dosage: UNK
  5. TOCO [Concomitant]
     Dosage: UNK

REACTIONS (1)
  - Pharyngeal ulceration [Recovered/Resolved]
